FAERS Safety Report 8430260-1 (Version None)
Quarter: 2012Q2

REPORT INFORMATION
  Report Type: 
  Country: None (occurrence: None)
  Receive Date: 20120606
  Receipt Date: 20120606
  Transmission Date: 20120825
  Serious: No
  Sender: FDA-Public Use
  Company Number: None

PATIENT
  Age: 59 Year
  Sex: Male

DRUGS (2)
  1. PEGINTERFERON ALFA-2A [Suspect]
     Dosage: 180 MCG QW SQ
     Route: 058
     Dates: start: 20120504, end: 20120523
  2. RIBAVIRIN [Suspect]
     Dosage: 400MG BID PO
     Route: 048
     Dates: start: 20120504, end: 20120523

REACTIONS (3)
  - RASH GENERALISED [None]
  - SKIN SWELLING [None]
  - PRURITUS [None]
